FAERS Safety Report 19036024 (Version 1)
Quarter: 2021Q1

REPORT INFORMATION
  Report Type: Spontaneous
  Country: US (occurrence: US)
  Receive Date: 20210321
  Receipt Date: 20210321
  Transmission Date: 20210420
  Serious: Yes (Hospitalization)
  Sender: FDA-Public Use
  Company Number: US-TEVA-2021-US-1890762

PATIENT
  Age: 14 Year
  Sex: Male

DRUGS (17)
  1. ADENOSINE. [Suspect]
     Active Substance: ADENOSINE
     Dosage: ADMINISTERED THROUGH THE CENTRAL VENOUS CATHETER
     Route: 042
  2. DEXMETATOMIDINE [Concomitant]
     Indication: ANAESTHESIA
     Route: 050
  3. PHENYLEPHRINE [Concomitant]
     Active Substance: PHENYLEPHRINE HYDROCHLORIDE
     Indication: HYPOTENSION
     Route: 065
  4. ADENOSINE. [Suspect]
     Active Substance: ADENOSINE
     Indication: SUPRAVENTRICULAR TACHYCARDIA
     Dosage: ADMINISTERED THROUGH THE CENTRAL VENOUS CATHETER
     Route: 042
  5. BUPROPION. [Concomitant]
     Active Substance: BUPROPION
     Indication: PRODUCT USED FOR UNKNOWN INDICATION
     Dosage: 75 MILLIGRAM DAILY; BY MOUTH
     Route: 048
  6. ISOFLURANE. [Concomitant]
     Active Substance: ISOFLURANE
     Indication: ANAESTHESIA
     Route: 065
  7. ETOMIDATE. [Concomitant]
     Active Substance: ETOMIDATE
     Indication: INDUCTION OF ANAESTHESIA
     Route: 042
  8. SEVOFLURANE. [Concomitant]
     Active Substance: SEVOFLURANE
     Indication: INDUCTION OF ANAESTHESIA
     Dosage: INHALED SEVOFLURANE
     Route: 055
  9. VECURONIUM [Concomitant]
     Active Substance: VECURONIUM BROMIDE
     Indication: NEUROMUSCULAR BLOCKADE
     Route: 065
  10. MIDAZOLAM. [Concomitant]
     Active Substance: MIDAZOLAM
     Indication: PREMEDICATION
     Route: 048
  11. FENTANYL. [Concomitant]
     Active Substance: FENTANYL
     Indication: INDUCTION OF ANAESTHESIA
     Route: 042
  12. EPINEPHRINE. [Concomitant]
     Active Substance: EPINEPHRINE
     Indication: HYPOTENSION
     Route: 065
  13. MILRINONE [Concomitant]
     Active Substance: MILRINONE
     Indication: PRODUCT USED FOR UNKNOWN INDICATION
     Dosage: LOADING DOSE
     Route: 065
  14. ACETYL SALICYLIC ACID [Suspect]
     Active Substance: ASPIRIN
     Indication: PRODUCT USED FOR UNKNOWN INDICATION
     Dosage: 81 MILLIGRAM DAILY; BY MOUTH
     Route: 048
  15. EPINEPHRINE. [Concomitant]
     Active Substance: EPINEPHRINE
     Dosage: EPINEPHRINE WAS STARTED AGAIN
     Route: 065
  16. MILRINONE [Concomitant]
     Active Substance: MILRINONE
     Route: 050
  17. ENALAPRIL [Suspect]
     Active Substance: ENALAPRIL
     Indication: PRODUCT USED FOR UNKNOWN INDICATION
     Dosage: 5 MILLIGRAM DAILY; BY MOUTH
     Route: 048

REACTIONS (3)
  - Haemorrhage [Unknown]
  - Drug ineffective [Unknown]
  - Hypotension [Recovering/Resolving]
